FAERS Safety Report 9061785 (Version 3)
Quarter: 2013Q2

REPORT INFORMATION
  Report Type: Spontaneous
  Country: US (occurrence: None)
  Receive Date: 20130122
  Receipt Date: 20130417
  Transmission Date: 20140414
  Serious: Yes (Hospitalization)
  Sender: FDA-Public Use
  Company Number: 2013MPI00006

PATIENT
  Age: 62 Year
  Sex: Female
  Weight: 86 kg

DRUGS (4)
  1. BRENTUXIMAB VEDOTIN [Suspect]
     Indication: HODGKIN^S DISEASE
     Dosage: 1.2 MG/KG, UNK, INTRAVENOUS
     Route: 042
     Dates: start: 20121119, end: 20121226
  2. DOXORUBICIN [Suspect]
     Indication: HODGKIN^S DISEASE
     Dosage: 25 MG/M2, QCYCLE, INTRAVENOUS
     Route: 042
     Dates: start: 20121119, end: 20121226
  3. VINBLASTINE [Suspect]
     Indication: HODGKIN^S DISEASE
     Dosage: 6 MG/M2, QCYCLE, INTRAVENOUS
     Route: 042
     Dates: start: 20121119, end: 20121226
  4. DACARBAZINE [Suspect]
     Indication: HODGKIN^S DISEASE
     Dosage: 375 MG/M2 , QCYCLE, INTRAVENOUS
     Route: 042
     Dates: start: 20121119, end: 20121226

REACTIONS (8)
  - Nausea [None]
  - Vomiting [None]
  - Diarrhoea [None]
  - Pallor [None]
  - Tachycardia [None]
  - Malaise [None]
  - Dehydration [None]
  - Gastroenteritis viral [None]
